FAERS Safety Report 10043682 (Version 2)
Quarter: 2014Q2

REPORT INFORMATION
  Report Type: Spontaneous
  Country: US (occurrence: US)
  Receive Date: 20140328
  Receipt Date: 20140423
  Transmission Date: 20141212
  Serious: Yes (Other)
  Sender: FDA-Public Use
  Company Number: US-JNJFOC-20140311100

PATIENT
  Age: 39 Year
  Sex: Male

DRUGS (8)
  1. RISPERDAL [Suspect]
     Indication: DEPRESSION
     Route: 048
     Dates: end: 20140216
  2. RISPERDAL [Suspect]
     Indication: DEPRESSION
     Route: 048
     Dates: start: 201201
  3. RISPERIDONE [Suspect]
     Indication: DEPRESSION
     Route: 048
  4. RISPERIDONE [Suspect]
     Indication: DEPRESSION
     Route: 048
     Dates: end: 20140216
  5. RISPERIDONE [Suspect]
     Indication: DEPRESSION
     Route: 048
  6. BUPROPION [Suspect]
     Indication: DEPRESSION
     Route: 048
     Dates: start: 2011
  7. LISINOPRIL [Concomitant]
     Indication: HYPERTENSION
     Route: 048
     Dates: start: 2011
  8. PROPRANOLOL HYDROCHLORIDE [Concomitant]
     Indication: BLOOD CHOLESTEROL
     Route: 048
     Dates: start: 2011

REACTIONS (6)
  - Cellulitis [Recovered/Resolved]
  - Weight increased [Recovering/Resolving]
  - Breast enlargement [Recovering/Resolving]
  - Breast disorder [Recovering/Resolving]
  - Gait disturbance [Not Recovered/Not Resolved]
  - Breast pain [Recovering/Resolving]
